FAERS Safety Report 8169265-7 (Version None)
Quarter: 2012Q1

REPORT INFORMATION
  Report Type: 
  Country: None (occurrence: None)
  Receive Date: 20120228
  Receipt Date: 20120216
  Transmission Date: 20120608
  Serious: Yes (Other)
  Sender: FDA-Public Use
  Company Number: US-ASTRAZENECA-2012SE11113

PATIENT
  Age: 22 Year
  Sex: Male

DRUGS (2)
  1. ANTIBIOTICS [Suspect]
  2. NEXIUM [Suspect]
     Route: 048

REACTIONS (4)
  - MUSCLE SPASMS [None]
  - CEREBRAL PALSY [None]
  - DRUG HYPERSENSITIVITY [None]
  - MALAISE [None]
